FAERS Safety Report 5056476-2 (Version None)
Quarter: 2006Q2

REPORT INFORMATION
  Report Type: 
  Country: None (occurrence: None)
  Receive Date: 20060616
  Receipt Date: 20060407
  Transmission Date: 20061013
  Serious: Yes (Hospitalization)
  Sender: FDA-Public Use
  Company Number: 200613174US

PATIENT
  Age: 88 Year
  Sex: Female
  Weight: 73 kg

DRUGS (3)
  1. LANTUS [Suspect]
     Indication: DIABETES MELLITUS NON-INSULIN-DEPENDENT
     Dosage: 10 U QPM
     Dates: start: 20060325, end: 20060402
  2. OPTICLIK [Suspect]
     Dosage: QPM
     Dates: start: 20060325, end: 20060402
  3. UNSPECIFIED CONCOMITANT MEDICATIONS [Concomitant]

REACTIONS (1)
  - BLOOD GLUCOSE DECREASED [None]
